FAERS Safety Report 5381832-2 (Version None)
Quarter: 2007Q3

REPORT INFORMATION
  Report Type: 
  Country: None (occurrence: None)
  Receive Date: 20070705
  Receipt Date: 20070705
  Transmission Date: 20080115
  Serious: Yes (Death)
  Sender: FDA-Public Use
  Company Number: None

PATIENT
  Age: 57 Year
  Sex: Male

DRUGS (1)
  1. DOCETAXEL [Suspect]
     Dosage: 120MG ONCE IV
     Route: 042
     Dates: start: 20061115, end: 20061115

REACTIONS (4)
  - NEUTROPHIL COUNT DECREASED [None]
  - PANCYTOPENIA [None]
  - PNEUMONIA [None]
  - WHITE BLOOD CELL COUNT DECREASED [None]
